FAERS Safety Report 17088833 (Version 2)
Quarter: 2024Q2

REPORT INFORMATION
  Report Type: Spontaneous
  Country: US (occurrence: None)
  Receive Date: 20191128
  Receipt Date: 20240514
  Transmission Date: 20240715
  Serious: Yes (Hospitalization)
  Sender: FDA-Public Use
  Company Number: US-ROCHE-2204829

PATIENT
  Age: 70 Year
  Sex: Female
  Weight: 104.87 kg

DRUGS (7)
  1. HERCEPTIN [Suspect]
     Active Substance: TRASTUZUMAB
     Indication: Endometrial cancer
     Dosage: LOADING DOSE
     Route: 042
     Dates: start: 20170117
  2. PERJETA [Suspect]
     Active Substance: PERTUZUMAB
     Indication: Endometrial cancer
     Dosage: 420/14 ML, (INFUSE 840 MG INTRAVENOUSLY)
     Route: 042
     Dates: start: 20180925
  3. MONTELUKAST [Concomitant]
     Active Substance: MONTELUKAST SODIUM
     Route: 048
     Dates: start: 20170203
  4. XARELTO [Concomitant]
     Active Substance: RIVAROXABAN
     Route: 048
     Dates: start: 20170203
  5. FUROSEMIDE [Concomitant]
     Active Substance: FUROSEMIDE
     Route: 048
     Dates: start: 20170203
  6. LEVOCETIRIZINE [Concomitant]
     Active Substance: LEVOCETIRIZINE
     Route: 048
     Dates: start: 20170203
  7. OMEPRAZOLE [Concomitant]
     Active Substance: DONEPEZIL HYDROCHLORIDE\OMEPRAZOLE\OMEPRAZOLE MAGNESIUM
     Route: 048
     Dates: start: 20170203

REACTIONS (2)
  - Haematological infection [Unknown]
  - Off label use [Unknown]
